FAERS Safety Report 21849635 (Version 1)
Quarter: 2023Q1

REPORT INFORMATION
  Report Type: Spontaneous
  Country: US (occurrence: None)
  Receive Date: 20230111
  Receipt Date: 20230111
  Transmission Date: 20230418
  Serious: Yes (Death)
  Sender: FDA-Public Use
  Company Number: None

PATIENT
  Age: 70 Year
  Sex: Female

DRUGS (3)
  1. TABRECTA [Suspect]
     Active Substance: CAPMATINIB
     Indication: Lung neoplasm malignant
     Dosage: FREQUENCY : TWICE A DAY;?
     Route: 048
     Dates: start: 20221214
  2. TABRECTA [Suspect]
     Active Substance: CAPMATINIB
     Indication: Tumour pain
  3. TABRECTA [Suspect]
     Active Substance: CAPMATINIB
     Indication: Metastases to bone

REACTIONS (1)
  - Death [None]

NARRATIVE: CASE EVENT DATE: 20230106
